FAERS Safety Report 23800772 (Version 3)
Quarter: 2024Q2

REPORT INFORMATION
  Report Type: Spontaneous
  Country: FR (occurrence: FR)
  Receive Date: 20240430
  Receipt Date: 20240612
  Transmission Date: 20240716
  Serious: No
  Sender: FDA-Public Use
  Company Number: FR-JNJFOC-20240459001

PATIENT
  Age: 3 Decade
  Sex: Female

DRUGS (1)
  1. SIMPONI [Suspect]
     Active Substance: GOLIMUMAB
     Indication: Product used for unknown indication
     Dosage: STRENGTH: 50.00 MG / 0.50 ML
     Route: 058

REACTIONS (5)
  - Product dose omission issue [Unknown]
  - Injection site haematoma [Unknown]
  - Product quality issue [Unknown]
  - Exposure via skin contact [Unknown]
  - Device deployment issue [Unknown]
